FAERS Safety Report 12757229 (Version 1)
Quarter: 2016Q3

REPORT INFORMATION
  Report Type: Spontaneous
  Country: US (occurrence: US)
  Receive Date: 20160919
  Receipt Date: 20160919
  Transmission Date: 20161109
  Serious: Yes (Other)
  Sender: FDA-Public Use
  Company Number: US-AMGEN-USASP2016123668

PATIENT
  Age: 48 Year
  Sex: Female

DRUGS (2)
  1. VECTIBIX [Suspect]
     Active Substance: PANITUMUMAB
     Dosage: 400 MG, Q2WK
     Route: 065
     Dates: start: 2016
  2. VECTIBIX [Suspect]
     Active Substance: PANITUMUMAB
     Indication: COLORECTAL CANCER METASTATIC
     Dosage: UNK
     Route: 065
     Dates: start: 20160627, end: 20160712

REACTIONS (4)
  - Dermatitis acneiform [Unknown]
  - Hepatic enzyme increased [Unknown]
  - Dry skin [Unknown]
  - Liver ablation [Unknown]

NARRATIVE: CASE EVENT DATE: 2016
